FAERS Safety Report 7593444-0 (Version None)
Quarter: 2011Q3

REPORT INFORMATION
  Report Type: 
  Country: None (occurrence: None)
  Receive Date: 20110706
  Receipt Date: 20110701
  Transmission Date: 20111222
  Serious: Yes (Hospitalization, Other)
  Sender: FDA-Public Use
  Company Number: US-MERCK-1011USA03394

PATIENT
  Age: 66 Year
  Sex: Female
  Weight: 77 kg

DRUGS (10)
  1. DIETARY SUPPLEMENT (UNSPECIFIED) [Concomitant]
     Route: 065
  2. FOSAMAX [Suspect]
     Indication: OSTEOPOROSIS
     Route: 048
     Dates: start: 20000401, end: 20011207
  3. DECADRON [Concomitant]
     Route: 048
  4. FLAGYL [Concomitant]
     Route: 065
  5. VANCOMYCIN [Concomitant]
     Route: 048
  6. QUININE SULFATE [Concomitant]
     Route: 065
  7. COUMADIN [Concomitant]
     Route: 065
  8. BONIVA [Concomitant]
     Route: 065
     Dates: start: 20080101
  9. FOSAMAX [Suspect]
     Route: 048
     Dates: start: 20020501, end: 20070101
  10. VITAMINS (UNSPECIFIED) [Concomitant]
     Route: 065

REACTIONS (92)
  - LUMBAR SPINAL STENOSIS [None]
  - COUGH [None]
  - OSTEOCHONDROSIS [None]
  - NEUROPATHY PERIPHERAL [None]
  - INFECTION [None]
  - CEREBROVASCULAR DISORDER [None]
  - ABDOMINAL HERNIA OBSTRUCTIVE [None]
  - HYPOXIA [None]
  - LACERATION [None]
  - STAPHYLOCOCCAL INFECTION [None]
  - HAEMOPTYSIS [None]
  - RESPIRATORY TRACT INFECTION [None]
  - BLOOD PARATHYROID HORMONE INCREASED [None]
  - HYPERSENSITIVITY [None]
  - NASOPHARYNGITIS [None]
  - CEREBRAL ISCHAEMIA [None]
  - EAR PAIN [None]
  - SEPSIS [None]
  - BASAL CELL CARCINOMA [None]
  - BLADDER SPASM [None]
  - LEUKOPENIA [None]
  - HYPOVITAMINOSIS [None]
  - VITAMIN D DEFICIENCY [None]
  - PARKINSON'S DISEASE [None]
  - PAIN IN EXTREMITY [None]
  - FOOT FRACTURE [None]
  - FALL [None]
  - HYPOCALCAEMIA [None]
  - CONSTIPATION [None]
  - BREAST CALCIFICATIONS [None]
  - CHEST PAIN [None]
  - CLOSTRIDIUM DIFFICILE COLITIS [None]
  - MALLORY-WEISS SYNDROME [None]
  - VAGINAL HAEMORRHAGE [None]
  - LYMPHOID TISSUE HYPERPLASIA [None]
  - ANXIETY [None]
  - ARTERIOSCLEROSIS [None]
  - PNEUMONIA [None]
  - PAIN [None]
  - DIARRHOEA [None]
  - CONTUSION [None]
  - ASPIRATION [None]
  - POST PROCEDURAL HAEMORRHAGE [None]
  - ORAL CANDIDIASIS [None]
  - ARTHROPATHY [None]
  - WOUND DEHISCENCE [None]
  - WHEEZING [None]
  - DEHYDRATION [None]
  - CORONARY ARTERY DISEASE [None]
  - THROMBOCYTOPENIA [None]
  - TENDERNESS [None]
  - OSTEOPENIA [None]
  - RIB FRACTURE [None]
  - INCONTINENCE [None]
  - OSTEONECROSIS [None]
  - ELECTROLYTE IMBALANCE [None]
  - GASTROENTERITIS VIRAL [None]
  - FLANK PAIN [None]
  - WRONG DRUG ADMINISTERED [None]
  - CEREBROVASCULAR ACCIDENT [None]
  - PHARYNGITIS [None]
  - NAUSEA [None]
  - URINARY TRACT INFECTION [None]
  - SPINAL CORD COMPRESSION [None]
  - SKIN DISORDER [None]
  - ACUTE RESPIRATORY FAILURE [None]
  - BRONCHITIS [None]
  - CONVULSION [None]
  - INTERNATIONAL NORMALISED RATIO INCREASED [None]
  - PSORIASIS [None]
  - HYPOVOLAEMIA [None]
  - KYPHOSIS [None]
  - SKIN INFECTION [None]
  - HYPOKALAEMIA [None]
  - EYE INFECTION [None]
  - HAEMORRHAGIC ANAEMIA [None]
  - HYPOGLYCAEMIA [None]
  - PULMONARY EMBOLISM [None]
  - MYOCARDIAL INFARCTION [None]
  - SIALOADENITIS [None]
  - COMA [None]
  - STOMATITIS [None]
  - FOOT DEFORMITY [None]
  - HAEMORRHOIDAL HAEMORRHAGE [None]
  - CARDIOMYOPATHY [None]
  - FEMUR FRACTURE [None]
  - DEEP VEIN THROMBOSIS [None]
  - GASTROINTESTINAL HAEMORRHAGE [None]
  - VERTIGO [None]
  - WOUND INFECTION STAPHYLOCOCCAL [None]
  - CARDIAC DISORDER [None]
  - BONE LESION [None]
